FAERS Safety Report 25666052 (Version 1)
Quarter: 2025Q3

REPORT INFORMATION
  Report Type: Spontaneous
  Country: US (occurrence: US)
  Receive Date: 20250811
  Receipt Date: 20250811
  Transmission Date: 20251021
  Serious: No
  Sender: ALNYLAM PHARMACEUTICALS
  Company Number: US-ALNYLAM PHARMACEUTICALS, INC.-ALN-2025-004707

PATIENT

DRUGS (3)
  1. AMVUTTRA [Suspect]
     Active Substance: VUTRISIRAN
     Indication: Cardiac amyloidosis
     Route: 065
  2. VYNDAMAX [Concomitant]
     Active Substance: TAFAMIDIS
     Indication: Cardiac amyloidosis
     Route: 065
  3. CRESTOR [Concomitant]
     Active Substance: ROSUVASTATIN CALCIUM
     Indication: Product used for unknown indication
     Route: 065

REACTIONS (6)
  - Fall [Unknown]
  - Upper limb fracture [Unknown]
  - Ligament sprain [Unknown]
  - Fatigue [Unknown]
  - Contusion [Unknown]
  - Swelling face [Unknown]
